FAERS Safety Report 6032826-5 (Version None)
Quarter: 2009Q1

REPORT INFORMATION
  Report Type: 
  Country: None (occurrence: None)
  Receive Date: 20090105
  Receipt Date: 20080909
  Transmission Date: 20090719
  Serious: Yes (Hospitalization, Disabling, Other)
  Sender: FDA-Public Use
  Company Number: US-001861

PATIENT
  Age: 59 Year
  Sex: Male
  Weight: 75 kg

DRUGS (21)
  1. PROHANCE [Suspect]
     Indication: NUCLEAR MAGNETIC RESONANCE IMAGING BRAIN
     Dosage: INTRAVENOUS
     Route: 042
     Dates: start: 20011206, end: 20011206
  2. GADOLINIUM - PRODUCT UNKNOWN (UNKNOWN) [Suspect]
     Indication: NUCLEAR MAGNETIC RESONANCE IMAGING
     Dosage: 40ML INTRAVENOUS, 15ML, 8ML, 20ML
     Route: 042
     Dates: start: 20020924, end: 20020924
  3. GADOLINIUM - PRODUCT UNKNOWN (UNKNOWN) [Suspect]
     Indication: VENOGRAM RENAL
     Dosage: 40ML INTRAVENOUS, 15ML, 8ML, 20ML
     Route: 042
     Dates: start: 20020924, end: 20020924
  4. GADOLINIUM - PRODUCT UNKNOWN (UNKNOWN) [Suspect]
     Indication: NUCLEAR MAGNETIC RESONANCE IMAGING
     Dosage: 40ML INTRAVENOUS, 15ML, 8ML, 20ML
     Route: 042
     Dates: start: 20020925, end: 20020925
  5. GADOLINIUM - PRODUCT UNKNOWN (UNKNOWN) [Suspect]
     Indication: VENOGRAM RENAL
     Dosage: 40ML INTRAVENOUS, 15ML, 8ML, 20ML
     Route: 042
     Dates: start: 20020925, end: 20020925
  6. GADOLINIUM - PRODUCT UNKNOWN (UNKNOWN) [Suspect]
     Indication: NUCLEAR MAGNETIC RESONANCE IMAGING
     Dosage: 40ML INTRAVENOUS, 15ML, 8ML, 20ML
     Route: 042
     Dates: start: 20020930, end: 20020930
  7. GADOLINIUM - PRODUCT UNKNOWN (UNKNOWN) [Suspect]
     Indication: VENOGRAM RENAL
     Dosage: 40ML INTRAVENOUS, 15ML, 8ML, 20ML
     Route: 042
     Dates: start: 20020930, end: 20020930
  8. MAGNEVIST [Suspect]
     Indication: RENAL ARTERITIS
     Dates: start: 20031021, end: 20031021
  9. MAGNEVIST [Suspect]
     Indication: RENAL ARTERITIS
     Dates: start: 20050817, end: 20050817
  10. OMNISCAN [Suspect]
     Indication: NUCLEAR MAGNETIC RESONANCE IMAGING
     Dosage: 36ML INTRAVENOUS
     Route: 042
     Dates: start: 20020924, end: 20020924
  11. ZYLOPRIM [Concomitant]
  12. ZANTAC 150 [Concomitant]
  13. PROGRAF [Concomitant]
  14. CELLCEPT [Concomitant]
  15. PREDNISONE TAB [Concomitant]
  16. ATENOLOL [Concomitant]
  17. NORVASC [Concomitant]
  18. K-PHOS (POTASSIUM PHOSPHATE MONOBASIC) [Concomitant]
  19. ORAL CONTRAST () [Concomitant]
  20. OMNIPAQUE 350 [Concomitant]
  21. VISIPAQUE [Concomitant]

REACTIONS (1)
  - NEPHROGENIC SYSTEMIC FIBROSIS [None]
